FAERS Safety Report 21976871 (Version 3)
Quarter: 2023Q1

REPORT INFORMATION
  Report Type: Spontaneous
  Country: US (occurrence: US)
  Receive Date: 20230210
  Receipt Date: 20230217
  Transmission Date: 20230417
  Serious: No
  Sender: FDA-Public Use
  Company Number: US-SANOFI-01483757

PATIENT
  Age: 51 Year
  Sex: Female

DRUGS (2)
  1. LANTUS [Suspect]
     Active Substance: INSULIN GLARGINE
     Indication: Type 1 diabetes mellitus
     Dosage: UNK
     Dates: start: 2019
  2. NOVOLOG [Concomitant]
     Active Substance: INSULIN ASPART
     Indication: Blood glucose
     Dosage: UNK

REACTIONS (2)
  - Blood glucose increased [Unknown]
  - Drug effect less than expected [Unknown]
